FAERS Safety Report 5766832-2 (Version None)
Quarter: 2008Q2

REPORT INFORMATION
  Report Type: 
  Country: None (occurrence: None)
  Receive Date: 20080609
  Receipt Date: 20080602
  Transmission Date: 20081010
  Serious: Yes (Life-Threatening)
  Sender: FDA-Public Use
  Company Number: 2008SP006321

PATIENT
  Age: 55 Year
  Sex: Male
  Weight: 55 kg

DRUGS (7)
  1. RIBAVIRIN [Suspect]
     Indication: HEPATITIS C
     Dates: start: 20070303, end: 20080115
  2. PEGYLATED INTERFERON ALFA-2A (PEGINTERFERON ALFA-2A) [Suspect]
     Indication: HEPATITIS C
     Dates: start: 20070303, end: 20080115
  3. CETIRIZINE HYDROCHLORIDE [Concomitant]
  4. ACETAMINOPHEN W/ CODEINE [Concomitant]
  5. IBUROFEN [Concomitant]
  6. IMODIUM [Concomitant]
  7. RANITIDINE HYDROCHLORIDE [Concomitant]

REACTIONS (1)
  - ACQUIRED HAEMOPHILIA [None]
